FAERS Safety Report 5812238-7 (Version None)
Quarter: 2008Q3

REPORT INFORMATION
  Report Type: 
  Country: None (occurrence: None)
  Receive Date: 20080716
  Receipt Date: 20080714
  Transmission Date: 20090109
  Serious: Yes (Hospitalization)
  Sender: FDA-Public Use
  Company Number: IT-MERCK-0806ITA00030

PATIENT
  Age: 12 Year
  Sex: Male
  Weight: 25 kg

DRUGS (3)
  1. SINGULAIR [Suspect]
     Indication: COUGH
     Route: 048
     Dates: start: 20080101, end: 20080610
  2. LANSOPRAZOLE [Suspect]
     Indication: COUGH
     Route: 048
     Dates: start: 20080501, end: 20080610
  3. FLUTICASONE PROPIONATE AND SALMETEROL XINAFOATE [Concomitant]
     Indication: COUGH

REACTIONS (2)
  - HEADACHE [None]
  - VERTIGO [None]
